FAERS Safety Report 4809074-7 (Version None)
Quarter: 2005Q4

REPORT INFORMATION
  Report Type: 
  Country: None (occurrence: None)
  Receive Date: 20051024
  Receipt Date: 20051024
  Transmission Date: 20060501
  Serious: Yes (Life-Threatening, Hospitalization)
  Sender: FDA-Public Use
  Company Number: None

PATIENT
  Age: 56 Year
  Sex: Male
  Weight: 70 kg

DRUGS (1)
  1. WARFARIN [Suspect]
     Dosage: 30MG 1 WK

REACTIONS (1)
  - GASTROINTESTINAL HAEMORRHAGE [None]
